FAERS Safety Report 14511856 (Version 1)
Quarter: 2018Q1

REPORT INFORMATION
  Report Type: Spontaneous
  Country: US (occurrence: US)
  Receive Date: 20180209
  Receipt Date: 20180209
  Transmission Date: 20180509
  Serious: Yes (Hospitalization)
  Sender: FDA-Public Use
  Company Number: US-JNJFOC-20180204447

PATIENT
  Sex: Male

DRUGS (18)
  1. AMBISOME [Concomitant]
     Active Substance: AMPHOTERICIN B
     Route: 065
     Dates: start: 20171120
  2. LASIX [Concomitant]
     Active Substance: FUROSEMIDE
     Route: 048
     Dates: start: 20170127, end: 20180118
  3. BACID [Concomitant]
     Active Substance: LACTOBACILLUS ACIDOPHILUS
     Route: 048
     Dates: start: 20171120
  4. PRAVACHOL [Concomitant]
     Active Substance: PRAVASTATIN SODIUM
     Route: 048
     Dates: start: 20170127, end: 20180125
  5. COZAAR [Concomitant]
     Active Substance: LOSARTAN POTASSIUM
     Route: 048
     Dates: start: 20171218
  6. ASPIRIN. [Concomitant]
     Active Substance: ASPIRIN
     Route: 048
  7. CARDURA [Concomitant]
     Active Substance: DOXAZOSIN MESYLATE
     Route: 048
     Dates: start: 20171218
  8. MICRO-K [Concomitant]
     Active Substance: POTASSIUM CHLORIDE
     Route: 048
     Dates: start: 20171128, end: 20180111
  9. MAGNESIUM SULFATE. [Concomitant]
     Active Substance: MAGNESIUM SULFATE
     Route: 048
     Dates: start: 20171129, end: 20180125
  10. GLUCOPHAGE [Concomitant]
     Active Substance: METFORMIN HYDROCHLORIDE
     Route: 048
     Dates: start: 20171218
  11. PROTONIX [Concomitant]
     Active Substance: PANTOPRAZOLE SODIUM
     Route: 048
     Dates: start: 20171218
  12. HYDROCORTISONE. [Concomitant]
     Active Substance: HYDROCORTISONE
     Indication: RASH
     Route: 061
     Dates: start: 20171127
  13. SPORANOX [Suspect]
     Active Substance: ITRACONAZOLE
     Indication: BLASTOMYCOSIS
     Route: 048
     Dates: start: 20171122, end: 20180125
  14. BYSTOLIC [Concomitant]
     Active Substance: NEBIVOLOL HYDROCHLORIDE
     Route: 048
     Dates: start: 20170821
  15. HUMULIN NOS [Concomitant]
     Active Substance: INSULIN HUMAN
     Route: 065
     Dates: start: 20171214
  16. INSULIN [Concomitant]
     Active Substance: INSULIN NOS
     Route: 065
     Dates: start: 20171116
  17. NORVASC [Concomitant]
     Active Substance: AMLODIPINE BESYLATE
     Route: 048
     Dates: start: 20171127
  18. HUMALOG [Concomitant]
     Active Substance: INSULIN LISPRO
     Route: 058
     Dates: start: 20171108

REACTIONS (1)
  - Influenza [Unknown]
